FAERS Safety Report 4543912-0 (Version None)
Quarter: 2005Q1

REPORT INFORMATION
  Report Type: 
  Country: None (occurrence: None)
  Receive Date: 20050103
  Receipt Date: 20040419
  Transmission Date: 20050727
  Serious: Yes (Hospitalization)
  Sender: FDA-Public Use
  Company Number: GXKR2004GB00486

PATIENT
  Age: 46 Year
  Sex: Female

DRUGS (1)
  1. ATENOLOL [Suspect]
     Indication: HYPERTENSION
     Dosage: 5 MG/DAY, ORAL
     Route: 048
     Dates: start: 20040225, end: 20040406

REACTIONS (4)
  - APHONIA [None]
  - BRONCHIAL HYPERACTIVITY [None]
  - BRONCHOSPASM [None]
  - DYSPNOEA [None]
